FAERS Safety Report 9696386 (Version 1)
Quarter: 2013Q4

REPORT INFORMATION
  Report Type: Spontaneous
  Country: PL (occurrence: PL)
  Receive Date: 20131119
  Receipt Date: 20131119
  Transmission Date: 20140711
  Serious: Yes (Hospitalization, Other)
  Sender: FDA-Public Use
  Company Number: PHHY2013PL131122

PATIENT
  Age: 19 Year
  Sex: Male

DRUGS (1)
  1. CLOMIPRAMINE [Suspect]
     Indication: DEPRESSED MOOD
     Dosage: 20 MG, PER DAY
     Dates: start: 200507

REACTIONS (4)
  - Writer^s cramp [Recovered/Resolved]
  - Kayser-Fleischer ring [Unknown]
  - Urine copper increased [Unknown]
  - Masked facies [Unknown]
